FAERS Safety Report 5105495-6 (Version None)
Quarter: 2006Q3

REPORT INFORMATION
  Report Type: 
  Country: None (occurrence: None)
  Receive Date: 20060915
  Receipt Date: 20060731
  Transmission Date: 20061208
  Serious: Yes (Hospitalization, Other)
  Sender: FDA-Public Use
  Company Number: US-AVENTIS-200616365US

PATIENT
  Sex: Male

DRUGS (1)
  1. KETEK [Suspect]
     Route: 048
     Dates: start: 20060401

REACTIONS (3)
  - HEPATIC FAILURE [None]
  - SEPSIS [None]
  - VIRAL INFECTION [None]
